FAERS Safety Report 5339982-2 (Version None)
Quarter: 2007Q2

REPORT INFORMATION
  Report Type: 
  Country: None (occurrence: None)
  Receive Date: 20070531
  Receipt Date: 20070523
  Transmission Date: 20071010
  Serious: Yes (Other)
  Sender: FDA-Public Use
  Company Number: ES-AVENTIS-200712557EU

PATIENT

DRUGS (1)
  1. CLEXANE [Suspect]
     Indication: EXTRACORPOREAL CIRCULATION
     Route: 040

REACTIONS (5)
  - ADVERSE EVENT [None]
  - CHEST DISCOMFORT [None]
  - DRUG ADMINISTRATION ERROR [None]
  - RASH [None]
  - THROAT IRRITATION [None]
